FAERS Safety Report 24557022 (Version 1)
Quarter: 2024Q4

REPORT INFORMATION
  Report Type: Spontaneous
  Country: ES (occurrence: ES)
  Receive Date: 20241028
  Receipt Date: 20241028
  Transmission Date: 20250114
  Serious: Yes (Hospitalization, Other)
  Sender: AUROBINDO
  Company Number: ES-AEMPS-1579924

PATIENT
  Age: 91 Year
  Sex: Female

DRUGS (3)
  1. FUROSEMIDE [Interacting]
     Active Substance: FUROSEMIDE
     Indication: Cardiac failure congestive
     Dosage: 40 MILLIGRAM, ONCE A DAY
     Route: 048
     Dates: start: 20231011, end: 20240711
  2. FUROSEMIDE [Interacting]
     Active Substance: FUROSEMIDE
     Dosage: 140 MILLIGRAM, ONCE A DAY (2.5 - 1 - 0 COMPR (THE DOSE HAD BEEN INCREASED COMPARED TO WHAT THE PATIE
     Route: 048
     Dates: start: 20240712, end: 20240817
  3. ESIDREX [Interacting]
     Active Substance: HYDROCHLOROTHIAZIDE
     Indication: Hypertension
     Dosage: UNK
     Route: 048
     Dates: start: 20240712, end: 20240817

REACTIONS (4)
  - Hypokalaemia [Recovered/Resolved]
  - Syncope [Recovered/Resolved]
  - Metabolic alkalosis [Recovered/Resolved]
  - Hypotension [Recovered/Resolved]

NARRATIVE: CASE EVENT DATE: 20240816
